FAERS Safety Report 4499895-5 (Version None)
Quarter: 2004Q4

REPORT INFORMATION
  Report Type: 
  Country: None (occurrence: None)
  Receive Date: 20041112
  Receipt Date: 20041102
  Transmission Date: 20050328
  Serious: Yes (Other)
  Sender: FDA-Public Use
  Company Number: FRWYE066124SEP04

PATIENT
  Sex: Female
  Weight: 48 kg

DRUGS (2)
  1. ENBREL [Suspect]
     Indication: RHEUMATOID ARTHRITIS
     Route: 058
     Dates: start: 20040101, end: 20040601
  2. ENBREL [Suspect]
     Route: 058
     Dates: start: 20040601, end: 20041001

REACTIONS (6)
  - BLOOD IMMUNOGLOBULIN E INCREASED [None]
  - EOSINOPHILIA [None]
  - INJECTION SITE URTICARIA [None]
  - PARASITE TISSUE SPECIMEN TEST POSITIVE [None]
  - TOXOPLASMA SEROLOGY POSITIVE [None]
  - URTICARIA GENERALISED [None]
